FAERS Safety Report 4417289-5 (Version None)
Quarter: 2004Q3

REPORT INFORMATION
  Report Type: 
  Country: None (occurrence: None)
  Receive Date: 20040802
  Receipt Date: 20040719
  Transmission Date: 20050211
  Serious: Yes (Hospitalization, Other)
  Sender: FDA-Public Use
  Company Number: 2004049054

PATIENT
  Age: 61 Year
  Sex: Male

DRUGS (7)
  1. VIAGRA [Suspect]
     Indication: ILL-DEFINED DISORDER
     Dosage: ORAL
     Route: 048
     Dates: start: 20030101
  2. PREDNISONE [Concomitant]
  3. DIURETICS (DIURETICS) [Concomitant]
  4. FAMOTIDINE [Concomitant]
  5. ANTIHYPERTENSIVES (ANTIHYPERTENSIVES) [Concomitant]
  6. MULTIVITAMINS (ASCORBIC ACID, ERGOCALCIFEROL, FOLIC ACID, NICOTINAMIDE [Concomitant]
  7. B-KOMPLEX ^LECIVA^ (CALCIUM PANTOTHENATE, NICOTINAMIDE, PYRIDOXINE HYD [Concomitant]

REACTIONS (4)
  - IMMUNE SYSTEM DISORDER [None]
  - THROMBOTIC THROMBOCYTOPENIC PURPURA [None]
  - VIRAL INFECTION [None]
  - WEIGHT DECREASED [None]
